FAERS Safety Report 17680260 (Version 1)
Quarter: 2020Q2

REPORT INFORMATION
  Report Type: Spontaneous
  Country: DE (occurrence: DE)
  Receive Date: 20200417
  Receipt Date: 20200417
  Transmission Date: 20200714
  Serious: Yes (Life-Threatening, Other)
  Sender: FDA-Public Use
  Company Number: DE-COVIS PHARMA B.V.-2020COV00159

PATIENT
  Age: 82 Year
  Sex: Male

DRUGS (1)
  1. ALVESCO [Suspect]
     Active Substance: CICLESONIDE
     Indication: RESPIRATORY DISORDER
     Dosage: 80 ?G, 1X/DAY
     Dates: start: 2009

REACTIONS (11)
  - Pulmonary thrombosis [Unknown]
  - Increased bronchial secretion [Unknown]
  - Pleurisy [Unknown]
  - Emphysema [Unknown]
  - Pneumonia [Unknown]
  - Drug ineffective [Unknown]
  - Pulmonary embolism [Unknown]
  - Bacterial infection [Unknown]
  - Pneumonia bacterial [Unknown]
  - Pulmonary infarction [Unknown]
  - Cardiac disorder [Unknown]

NARRATIVE: CASE EVENT DATE: 201112
